FAERS Safety Report 8888972 (Version 1)
Quarter: 2012Q4

REPORT INFORMATION
  Report Type: 
  Country: US (occurrence: US)
  Receive Date: 20121106
  Receipt Date: 20121106
  Transmission Date: 20130627
  Serious: Yes (Other)
  Sender: FDA-Public Use
  Company Number: US-ELI_LILLY_AND_COMPANY-US201211000437

PATIENT

DRUGS (6)
  1. GEMCITABINE HYDROCHLORIDE [Suspect]
     Indication: ADENOCARCINOMA PANCREAS
     Dosage: 50 mg/m2, other
     Route: 042
  2. CETUXIMAB [Concomitant]
     Indication: ADENOCARCINOMA PANCREAS
     Dosage: 400 mg/m2, single
  3. CETUXIMAB [Concomitant]
     Dosage: 250 mg/m2, weekly (1/W)
  4. THERAPEUTIC RADIOPHARMACEUTICALS [Concomitant]
     Indication: ADENOCARCINOMA PANCREAS
  5. DIPHENHYDRAMINE [Concomitant]
     Dosage: 50 mg, weekly (1/W)
     Route: 042
  6. PROTON PUMP INHIBITORS [Concomitant]
     Indication: PROPHYLAXIS

REACTIONS (1)
  - Portal vein thrombosis [Unknown]
